FAERS Safety Report 4781108-8 (Version None)
Quarter: 2005Q3

REPORT INFORMATION
  Report Type: 
  Country: None (occurrence: None)
  Receive Date: 20050926
  Receipt Date: 20050926
  Transmission Date: 20060218
  Serious: Yes (Hospitalization)
  Sender: FDA-Public Use
  Company Number: None

PATIENT
  Sex: Male
  Weight: 89.8 kg

DRUGS (4)
  1. OXALIPLATIN [Suspect]
     Indication: COLON CANCER
     Dosage: SEE IMAGE
     Route: 042
     Dates: start: 20050906, end: 20050906
  2. LEUCOVORIN [Suspect]
     Dosage: SEE IMAGE
     Route: 042
     Dates: start: 20050906, end: 20050906
  3. FLUOROURACIL [Suspect]
     Dosage: SEE IMAGE
     Route: 040
     Dates: start: 20050906, end: 20050906
  4. FLUOROURACIL [Suspect]
     Dosage: SEE IMAGE
     Dates: start: 20050906

REACTIONS (7)
  - ABDOMINAL PAIN [None]
  - HAEMATOMA [None]
  - LETHARGY [None]
  - PERITONEAL HAEMORRHAGE [None]
  - SPLENIC RUPTURE [None]
  - SPLENOMEGALY [None]
  - SYNCOPE [None]
